FAERS Safety Report 16590408 (Version 1)
Quarter: 2019Q3

REPORT INFORMATION
  Report Type: Report from Study
  Country: US (occurrence: US)
  Receive Date: 20190718
  Receipt Date: 20190718
  Transmission Date: 20191004
  Serious: No
  Sender: FDA-Public Use
  Company Number: PHEH2019US029439

PATIENT
  Age: 39 Year
  Sex: Female

DRUGS (1)
  1. SIGNIFOR LAR [Suspect]
     Active Substance: PASIREOTIDE
     Indication: ACROMEGALY
     Dosage: 40 MG, Q4W
     Route: 030
     Dates: start: 20151020

REACTIONS (4)
  - Headache [Unknown]
  - Malaise [Unknown]
  - Cold sweat [Unknown]
  - Insomnia [Not Recovered/Not Resolved]
